FAERS Safety Report 5179553-4 (Version None)
Quarter: 2006Q4

REPORT INFORMATION
  Report Type: 
  Country: None (occurrence: None)
  Receive Date: 20061219
  Receipt Date: 20061212
  Transmission Date: 20070319
  Serious: Yes (Death)
  Sender: FDA-Public Use
  Company Number: SE-BOEHRINGER INGELHEIM PHARMACEUTICALS, INC.-2006-DE-06633GD

PATIENT
  Age: 89 Year
  Sex: Female

DRUGS (3)
  1. CLONIDINE [Suspect]
     Indication: HYPERTENSION
     Route: 042
  2. HEMOSPAN [Suspect]
     Indication: INTRAOPERATIVE CARE
     Route: 042
  3. BUPIVACAINE [Concomitant]
     Indication: SPINAL ANAESTHESIA
     Dosage: 12 - 15 MG (0.5%)

REACTIONS (6)
  - BLOOD PRESSURE SYSTOLIC DECREASED [None]
  - ELECTROCARDIOGRAM ST SEGMENT DEPRESSION [None]
  - MYOCARDIAL INFARCTION [None]
  - OLIGURIA [None]
  - PULMONARY OEDEMA [None]
  - SHOCK [None]
